FAERS Safety Report 9785529 (Version 1)
Quarter: 2013Q4

REPORT INFORMATION
  Report Type: Spontaneous
  Country: GB (occurrence: None)
  Receive Date: 20131223
  Receipt Date: 20131223
  Transmission Date: 20140711
  Serious: Yes (Other)
  Sender: FDA-Public Use
  Company Number: EUS-2013-00634

PATIENT
  Sex: 0

DRUGS (8)
  1. ASPARAGINASE (UNSPECIFIED) (ASPARAGINASE) [Suspect]
     Indication: ACUTE LYMPHOCYTIC LEUKAEMIA
     Dosage: 12000, IU/M2 DAY 4 INDUCTION PHASE, IV
     Route: 042
  2. DEXAMETHASONE [Concomitant]
  3. VINCRISTINE [Concomitant]
  4. METHOTREXATE [Concomitant]
  5. CYTARABINE [Concomitant]
  6. CYT/MTX/HC (HYDROCORTISONE) [Concomitant]
  7. DOXORUBICIN [Concomitant]
  8. 6-MERCAPTOPURINE [Concomitant]

REACTIONS (1)
  - Pneumonia [None]
